FAERS Safety Report 8241843-6 (Version None)
Quarter: 2012Q1

REPORT INFORMATION
  Report Type: 
  Country: None (occurrence: None)
  Receive Date: 20120328
  Receipt Date: 20120319
  Transmission Date: 20120608
  Serious: Yes (Hospitalization, Other)
  Sender: FDA-Public Use
  Company Number: US-ELI_LILLY_AND_COMPANY-US201201006138

PATIENT
  Sex: Female

DRUGS (8)
  1. DARVOCET [Concomitant]
     Dosage: UNK, QID
  2. IRON [Concomitant]
     Indication: ANAEMIA
  3. CALCIUM CARBONATE [Concomitant]
  4. ACTONEL [Concomitant]
     Dosage: UNK
     Dates: end: 20120108
  5. FORTEO [Suspect]
     Indication: OSTEOPOROSIS
     Dosage: 20 UG, QD
     Route: 065
  6. METHOTREXATE [Concomitant]
     Indication: CHEMOTHERAPY
     Dosage: UNK, 3/W
  7. VICODIN [Concomitant]
     Dosage: UNK, QID
  8. COUMADIN [Concomitant]

REACTIONS (20)
  - THORACIC VERTEBRAL FRACTURE [None]
  - ELECTROCARDIOGRAM T WAVE ABNORMAL [None]
  - FALL [None]
  - BODY HEIGHT DECREASED [None]
  - BLOOD IRON INCREASED [None]
  - PAIN [None]
  - BLOOD CALCIUM INCREASED [None]
  - MOVEMENT DISORDER [None]
  - GALLBLADDER DISORDER [None]
  - ANAEMIA [None]
  - NEPHROLITHIASIS [None]
  - KYPHOSIS [None]
  - CHOKING [None]
  - CHEMOTHERAPY [None]
  - CHEST PAIN [None]
  - DRUG LEVEL INCREASED [None]
  - LUMBAR VERTEBRAL FRACTURE [None]
  - BALANCE DISORDER [None]
  - CONSTIPATION [None]
  - DYSPNOEA [None]
